FAERS Safety Report 17809372 (Version 1)
Quarter: 2020Q2

REPORT INFORMATION
  Report Type: Other
  Country: CA (occurrence: CA)
  Receive Date: 20200520
  Receipt Date: 20200520
  Transmission Date: 20200714
  Serious: Yes (Hospitalization)
  Sender: FDA-Public Use
  Company Number: CA-COVIS PHARMA B.V.-2020COV00200

PATIENT
  Age: 52 Year
  Sex: Male

DRUGS (12)
  1. AMINOPHYLLINE. [Suspect]
     Active Substance: AMINOPHYLLINE
     Dosage: UNK
  2. FLUTICASONE FUROATE, VILANTEROL TRIFENATATE [Suspect]
     Active Substance: FLUTICASONE FUROATE\VILANTEROL TRIFENATATE
     Dosage: 200 ?G, 1X/DAY
  3. PREDNISONE. [Concomitant]
     Active Substance: PREDNISONE
  4. TIOTROPIUM [Suspect]
     Active Substance: TIOTROPIUM
     Dosage: 2.5 ?G, 1X/DAY
  5. ATROVENT [Suspect]
     Active Substance: IPRATROPIUM BROMIDE
     Dosage: 20 ?G, 1X/DAY
  6. PREDNISOLONE. [Suspect]
     Active Substance: PREDNISOLONE
     Dosage: UNK
  7. SALBUTAMOL SULFATE [Suspect]
     Active Substance: ALBUTEROL SULFATE
     Dosage: 100 ?G, 1X/DAY
  8. SPIRIVA [Suspect]
     Active Substance: TIOTROPIUM BROMIDE MONOHYDRATE
     Dosage: 18 ?G, 1X/DAY
  9. UMECLIDINIUM BROMIDE [Suspect]
     Active Substance: UMECLIDINIUM BROMIDE
     Dosage: 62.5 ?G, 1X/DAY
  10. CICLESONIDE [Suspect]
     Active Substance: CICLESONIDE
     Dosage: AEROSOL METERED DOSE
  11. FLUTICASONE FUROATE, VILANTEROL TRIFENATATE [Suspect]
     Active Substance: FLUTICASONE FUROATE\VILANTEROL TRIFENATATE
     Dosage: 100 ?G, 1X/DAY
  12. FLUTICASONE PROPIONATE, SALMETEROL XINAFOATE [Suspect]
     Active Substance: FLUTICASONE PROPIONATE\SALMETEROL XINAFOATE
     Dosage: 250 ?G, 1X/DAY

REACTIONS (3)
  - Asthma [Unknown]
  - Eosinophil count increased [Unknown]
  - Chronic obstructive pulmonary disease [Unknown]
